FAERS Safety Report 4488916-1 (Version None)
Quarter: 2004Q4

REPORT INFORMATION
  Report Type: 
  Country: None (occurrence: None)
  Receive Date: 20041029
  Receipt Date: 20041008
  Transmission Date: 20050328
  Serious: Yes (Hospitalization)
  Sender: FDA-Public Use
  Company Number: DE-ABBOTT-04P-062-0276889-00

PATIENT
  Sex: Male
  Weight: 87 kg

DRUGS (10)
  1. HUMIRA [Suspect]
     Indication: RHEUMATOID ARTHRITIS
     Route: 058
     Dates: start: 20040310
  2. METHYLPREDNISOLONE [Concomitant]
     Indication: RHEUMATOID ARTHRITIS
     Dates: start: 20040615
  3. ROFECOXIB [Concomitant]
     Indication: RHEUMATOID ARTHRITIS
     Dates: start: 20040813, end: 20041005
  4. ENALAPRIL MALEATE [Concomitant]
     Indication: CORONARY ARTERY DISEASE
  5. METOPROLOL SUCCINATE [Concomitant]
     Indication: CORONARY ARTERY DISEASE
  6. HYDROCHLOROTHIAZIDE [Concomitant]
     Indication: CORONARY ARTERY DISEASE
  7. ALLOPURINOL [Concomitant]
     Indication: CORONARY ARTERY DISEASE
  8. SIMVASTATIN [Concomitant]
     Indication: CORONARY ARTERY DISEASE
  9. ACETYLSALICYLIC ACID [Concomitant]
     Indication: CORONARY ARTERY DISEASE
  10. COMMERCIAL HUMIRA [Concomitant]
     Indication: RHEUMATOID ARTHRITIS
     Route: 058
     Dates: start: 20031002, end: 20040301

REACTIONS (8)
  - ANGINA PECTORIS [None]
  - CONDITION AGGRAVATED [None]
  - CORONARY ARTERY DISEASE [None]
  - CORONARY ARTERY OCCLUSION [None]
  - CORONARY ARTERY STENOSIS [None]
  - DYSPEPSIA [None]
  - ELECTROCARDIOGRAM ST SEGMENT DEPRESSION [None]
  - VENTRICULAR DYSFUNCTION [None]
